FAERS Safety Report 8617016 (Version 3)
Quarter: 2012Q4

REPORT INFORMATION
  Report Type: 
  Country: US (occurrence: US)
  Receive Date: 20120615
  Receipt Date: 20120914
  Transmission Date: 20130627
  Serious: Yes (Hospitalization)
  Sender: FDA-Public Use
  Company Number: US-PFIZER INC-2012133985

PATIENT
  Age: 69 Year
  Sex: Female
  Weight: 48.98 kg

DRUGS (10)
  1. IRINOTECAN HCL [Suspect]
     Indication: PANCREATIC CARCINOMA
     Dosage: 150 mg, every 2 weeks (days 1 and 15)
     Route: 042
     Dates: start: 20120319
  2. PF-05212384 [Suspect]
     Indication: PANCREATIC CARCINOMA
     Dosage: 130 mg, weekly (days 2, 9, 16, 23)
     Route: 042
     Dates: start: 20120320
  3. ALENDRONIC ACID [Concomitant]
     Indication: OSTEOPOROSIS
     Dosage: 70 mg, weekly
     Dates: start: 2009
  4. OLOPATADINE [Concomitant]
     Indication: CATARACT
     Dosage: 0.1 %, 4x/day
     Route: 047
  5. PREDNISOLONE [Concomitant]
     Indication: EYE INFLAMMATION
     Dosage: 1 %, 4x/day
     Route: 047
     Dates: start: 2009
  6. CALCIUM W/COLECALCIFEROL [Concomitant]
     Indication: OSTEOPOROSIS
     Dosage: UNK, 1x/day
     Route: 048
  7. VITAMIN B6 [Concomitant]
     Indication: OSTEOPOROSIS
     Dosage: UNK
     Route: 048
  8. SIMVASTATIN [Concomitant]
     Indication: BLOOD CHOLESTEROL INCREASED
     Dosage: 40 mg, 1x/day
     Route: 048
  9. ONDANSETRON [Concomitant]
     Indication: NAUSEA
     Dosage: 8 mg, as needed
     Route: 048
     Dates: start: 2012
  10. IMODIUM [Concomitant]
     Indication: DIARRHOEA
     Dosage: UNK
     Route: 048
     Dates: start: 20120320

REACTIONS (1)
  - Escherichia bacteraemia [Recovered/Resolved]
